FAERS Safety Report 11754781 (Version 2)
Quarter: 2015Q4

REPORT INFORMATION
  Report Type: Spontaneous
  Country: US (occurrence: US)
  Receive Date: 20151119
  Receipt Date: 20151120
  Transmission Date: 20160304
  Serious: No
  Sender: FDA-Public Use
  Company Number: US-ETHYPHARM USA CORP-EY-BP-US-2015-045

PATIENT
  Age: 46 Year
  Sex: Male

DRUGS (1)
  1. BUPRENORPHINE HYDROCHLORIDE 8MG [Suspect]
     Active Substance: BUPRENORPHINE HYDROCHLORIDE
     Indication: PAIN
     Route: 065

REACTIONS (3)
  - Somnolence [None]
  - Off label use [None]
  - Product substitution issue [None]
